FAERS Safety Report 13405020 (Version 1)
Quarter: 2017Q2

REPORT INFORMATION
  Report Type: Spontaneous
  Country: US (occurrence: US)
  Receive Date: 20170405
  Receipt Date: 20170405
  Transmission Date: 20170830
  Serious: Yes (Other)
  Sender: FDA-Public Use
  Company Number: US-SA-2017SA055462

PATIENT
  Age: 66 Year
  Sex: Male
  Weight: 204 kg

DRUGS (4)
  1. LANTUS SOLOSTAR [Suspect]
     Active Substance: INSULIN GLARGINE
     Dosage: DOSE:15 UNIT(S)
     Route: 065
     Dates: start: 2015
  2. NOVOLOG [Suspect]
     Active Substance: INSULIN ASPART
     Route: 065
  3. SOLOSTAR [Concomitant]
     Active Substance: DEVICE
     Dates: start: 2015
  4. METFORMIN [Suspect]
     Active Substance: METFORMIN HYDROCHLORIDE
     Route: 065

REACTIONS (10)
  - Blindness unilateral [Unknown]
  - Peripheral swelling [Unknown]
  - Waist circumference increased [Unknown]
  - Joint swelling [Unknown]
  - Weight increased [Unknown]
  - Arthropathy [Unknown]
  - Decreased appetite [Unknown]
  - Skin mass [Unknown]
  - Dyspnoea [Unknown]
  - Aortic aneurysm [Unknown]
